FAERS Safety Report 14198266 (Version 1)
Quarter: 2017Q4

REPORT INFORMATION
  Report Type: Spontaneous
  Country: SE (occurrence: SE)
  Receive Date: 20171117
  Receipt Date: 20171117
  Transmission Date: 20180321
  Serious: Yes (Other)
  Sender: FDA-Public Use
  Company Number: SE-SUN PHARMACEUTICAL INDUSTRIES LTD-2017R1-154933

PATIENT
  Sex: Female

DRUGS (9)
  1. BELIMUMAB [Suspect]
     Active Substance: BELIMUMAB
     Indication: SYSTEMIC LUPUS ERYTHEMATOSUS
     Dosage: 800 MG, MONTHLY
     Route: 042
     Dates: start: 2015
  2. BORTEZOMIB [Suspect]
     Active Substance: BORTEZOMIB
     Indication: SYSTEMIC LUPUS ERYTHEMATOSUS
     Dosage: CYCLICAL (2 CYCLES)
     Route: 065
     Dates: start: 2015
  3. MYCOPHENOLATE [Suspect]
     Active Substance: MYCOPHENOLIC ACID
     Indication: SYSTEMIC LUPUS ERYTHEMATOSUS
     Dosage: 2000 MG, DAILY
     Route: 065
     Dates: start: 2013
  4. PREDNISOLONE. [Suspect]
     Active Substance: PREDNISOLONE
     Indication: SYSTEMIC LUPUS ERYTHEMATOSUS
     Dosage: 5 MG, DAILY
     Route: 065
     Dates: start: 2015
  5. DEXAMETHASONE. [Suspect]
     Active Substance: DEXAMETHASONE
     Indication: SYSTEMIC LUPUS ERYTHEMATOSUS
     Dosage: CYCLICAL (2 CYCLES)
     Route: 065
     Dates: start: 2015
  6. HYDROXYCHLOROQUINE [Suspect]
     Active Substance: HYDROXYCHLOROQUINE
     Dosage: 400 MG, DAILY
     Route: 065
  7. BELIMUMAB [Suspect]
     Active Substance: BELIMUMAB
     Indication: SYSTEMIC LUPUS ERYTHEMATOSUS
     Dosage: UNK, DAILY
     Route: 065
     Dates: start: 2015
  8. HYDROXYCHLOROQUINE [Suspect]
     Active Substance: HYDROXYCHLOROQUINE
     Dosage: 200 MG, DAILY
     Route: 065
     Dates: start: 2015
  9. HYDROXYCHLOROQUINE [Suspect]
     Active Substance: HYDROXYCHLOROQUINE
     Indication: SYSTEMIC LUPUS ERYTHEMATOSUS
     Dosage: UNK
     Route: 065

REACTIONS (1)
  - Appendicitis [Unknown]

NARRATIVE: CASE EVENT DATE: 201607
